FAERS Safety Report 16182548 (Version 1)
Quarter: 2019Q2

REPORT INFORMATION
  Report Type: Spontaneous
  Country: DE (occurrence: DE)
  Receive Date: 20190411
  Receipt Date: 20190411
  Transmission Date: 20190711
  Serious: Yes (Hospitalization)
  Sender: FDA-Public Use
  Company Number: DE-MALLINCKRODT-T201902966

PATIENT
  Age: 89 Year
  Sex: Female

DRUGS (2)
  1. EXALGO [Suspect]
     Active Substance: HYDROMORPHONE HYDROCHLORIDE
     Indication: ARTHRALGIA
     Dosage: 20 MG, QD (16 MG IN THE MORNING AND 4 MG IN THE EVENING)
     Route: 048
  2. EXALGO [Suspect]
     Active Substance: HYDROMORPHONE HYDROCHLORIDE
     Dosage: 28 MG, QD (20 MG IN THE MORNING AND 8 MG IN THE EVENING)
     Route: 048

REACTIONS (4)
  - Coma [Unknown]
  - Pain [Unknown]
  - Product use issue [Unknown]
  - Off label use [Unknown]

NARRATIVE: CASE EVENT DATE: 20190329
